FAERS Safety Report 23968995 (Version 1)
Quarter: 2024Q2

REPORT INFORMATION
  Report Type: Spontaneous
  Country: US (occurrence: None)
  Receive Date: 20240612
  Receipt Date: 20240612
  Transmission Date: 20240717
  Serious: Yes (Hospitalization)
  Sender: FDA-Public Use
  Company Number: None

PATIENT
  Age: 41 Year
  Sex: Female
  Weight: 87.3 kg

DRUGS (5)
  1. SEMAGLUTIDE [Suspect]
     Active Substance: SEMAGLUTIDE
     Indication: Weight decreased
     Dosage: OTHER QUANTITY : 3 INJECTION(S);?OTHER FREQUENCY : ONCE PER WEEK;?
     Route: 058
  2. VYVANSE [Concomitant]
     Active Substance: LISDEXAMFETAMINE DIMESYLATE
  3. PROZAC [Concomitant]
     Active Substance: FLUOXETINE HYDROCHLORIDE
  4. aderall [Concomitant]
  5. IRON [Concomitant]
     Active Substance: IRON

REACTIONS (5)
  - Suicidal ideation [None]
  - Homicidal ideation [None]
  - Depression [None]
  - Metastatic renal cell carcinoma [None]
  - Therapy cessation [None]

NARRATIVE: CASE EVENT DATE: 20240523
